FAERS Safety Report 11385863 (Version 2)
Quarter: 2015Q3

REPORT INFORMATION
  Report Type: Report from Study
  Country: US (occurrence: US)
  Receive Date: 20150817
  Receipt Date: 20150828
  Transmission Date: 20151125
  Serious: Yes (Hospitalization, Other)
  Sender: FDA-Public Use
  Company Number: US-GILEAD-2015-0146479

PATIENT
  Age: 60 Year
  Sex: Female

DRUGS (5)
  1. VELETRI [Suspect]
     Active Substance: EPOPROSTENOL
     Indication: PRODUCT USED FOR UNKNOWN INDICATION
     Route: 065
  2. AMBRISENTAN [Suspect]
     Active Substance: AMBRISENTAN
     Indication: PULMONARY HYPERTENSION
     Dosage: 5 MG, QD
     Route: 065
     Dates: start: 20110727
  3. AMBRISENTAN [Suspect]
     Active Substance: AMBRISENTAN
     Indication: HEART DISEASE CONGENITAL
  4. ORENITRAM [Concomitant]
     Active Substance: TREPROSTINIL
  5. ADCIRCA [Concomitant]
     Active Substance: TADALAFIL

REACTIONS (13)
  - Pain in jaw [Unknown]
  - Headache [Unknown]
  - Diarrhoea [Unknown]
  - Dyspnoea [Unknown]
  - Myalgia [Unknown]
  - Fluid retention [Recovered/Resolved]
  - Pulmonary arterial wedge pressure increased [Recovering/Resolving]
  - Fatigue [Unknown]
  - Oedema [Unknown]
  - Pulmonary arterial hypertension [Unknown]
  - Cardiac failure [Unknown]
  - Chest pain [Unknown]
  - Palpitations [Unknown]
